FAERS Safety Report 24900824 (Version 2)
Quarter: 2025Q1

REPORT INFORMATION
  Report Type: Spontaneous
  Country: NO (occurrence: NO)
  Receive Date: 20250129
  Receipt Date: 20250203
  Transmission Date: 20250409
  Serious: Yes (Hospitalization)
  Sender: BAYER HEALTHCARE PHARMACEUTICALS INC.
  Company Number: NO-BAYER-2024A156994

PATIENT
  Age: 79 Year
  Sex: Male

DRUGS (2)
  1. XOFIGO [Suspect]
     Active Substance: RADIUM RA-223 DICHLORIDE
     Dates: start: 20241002, end: 20241002
  2. XOFIGO [Suspect]
     Active Substance: RADIUM RA-223 DICHLORIDE
     Dates: start: 20241106, end: 20241106

REACTIONS (7)
  - Dyspnoea [None]
  - Oedema peripheral [None]
  - Pericarditis [None]
  - Pleural effusion [None]
  - Pneumonia [None]
  - Hyponatraemia [None]
  - Hyperkalaemia [None]
